FAERS Safety Report 13861330 (Version 2)
Quarter: 2017Q3

REPORT INFORMATION
  Report Type: Spontaneous
  Country: US (occurrence: US)
  Receive Date: 20170811
  Receipt Date: 20170822
  Transmission Date: 20171127
  Serious: Yes (Other)
  Sender: FDA-Public Use
  Company Number: US-AMGEN-USASP2017119490

PATIENT
  Age: 67 Year
  Sex: Female

DRUGS (1)
  1. REPATHA [Suspect]
     Active Substance: EVOLOCUMAB
     Indication: BLOOD CHOLESTEROL INCREASED
     Dosage: 140 MG, Q2WK
     Route: 065
     Dates: start: 201511

REACTIONS (6)
  - Accident [Unknown]
  - Lower limb fracture [Unknown]
  - Eye disorder [Unknown]
  - Drug dose omission [Unknown]
  - Foot fracture [Unknown]
  - Intercepted medication error [Unknown]
